FAERS Safety Report 14151236 (Version 1)
Quarter: 2017Q4

REPORT INFORMATION
  Report Type: Report from Study
  Country: None (occurrence: BR)
  Receive Date: 20171102
  Receipt Date: 20171102
  Transmission Date: 20180321
  Serious: Yes (Disabling)
  Sender: FDA-Public Use
  Company Number: BR-ABBVIE-17K-020-2145893-00

PATIENT
  Age: 46 Year
  Sex: Female
  Weight: 79 kg

DRUGS (1)
  1. HUMIRA [Suspect]
     Active Substance: ADALIMUMAB
     Indication: RHEUMATOID ARTHRITIS
     Route: 058
     Dates: start: 20110901

REACTIONS (19)
  - Gait disturbance [Unknown]
  - Stress [Unknown]
  - Bedridden [Unknown]
  - Menopause [Unknown]
  - Fatigue [Unknown]
  - Agitation [Unknown]
  - Pain [Unknown]
  - Weight increased [Unknown]
  - Visual impairment [Unknown]
  - Crying [Unknown]
  - Urinary tract infection [Recovered/Resolved]
  - Retinal deposits [Unknown]
  - Dry eye [Unknown]
  - Tremor [Unknown]
  - Optic nerve disorder [Unknown]
  - Breast enlargement [Unknown]
  - Depression [Unknown]
  - Influenza [Recovering/Resolving]
  - Rhinitis [Recovering/Resolving]

NARRATIVE: CASE EVENT DATE: 20170911
